FAERS Safety Report 6713801-1 (Version None)
Quarter: 2010Q2

REPORT INFORMATION
  Report Type: 
  Country: None (occurrence: None)
  Receive Date: 20100504
  Receipt Date: 20100423
  Transmission Date: 20101027
  Serious: Yes (Other)
  Sender: FDA-Public Use
  Company Number: 1000013520

PATIENT
  Age: 55 Year
  Sex: Male
  Weight: 61 kg

DRUGS (5)
  1. CITALOPRAM HYDROBROMIDE [Suspect]
     Indication: DEPRESSION
     Dosage: 10 MG, ORAL
     Route: 048
     Dates: start: 20090101
  2. CITALOPRAM HYDROBROMIDE [Suspect]
     Indication: DEPRESSION
     Dosage: 30 MG, ORAL
     Route: 048
     Dates: end: 20100318
  3. CISORDINOL         (20 MILLIGRAM/MILLILITERS, DROPS (FOR ORAL USE)) [Suspect]
     Indication: PSYCHOTIC DISORDER
     Dosage: 10 MG, ORAL
     Route: 048
     Dates: start: 20090101
  4. OMEPRAZOL      (TABLETS) [Suspect]
     Indication: EPIGASTRIC DISCOMFORT
     Dosage: 20 MG (20 MG, 1 IN 1 D), ORAL
     Route: 048
     Dates: start: 20090101
  5. THIAMINE     (TABLETS) [Concomitant]

REACTIONS (2)
  - HYPOKALAEMIA [None]
  - HYPOMAGNESAEMIA [None]
